FAERS Safety Report 6665423-9 (Version None)
Quarter: 2010Q2

REPORT INFORMATION
  Report Type: 
  Country: None (occurrence: None)
  Receive Date: 20100402
  Receipt Date: 20100324
  Transmission Date: 20101027
  Serious: Yes (Other)
  Sender: FDA-Public Use
  Company Number: US-WYE-H12751709

PATIENT
  Age: 75 Year
  Sex: Male
  Weight: 83.6 kg

DRUGS (11)
  1. TORISEL [Suspect]
     Indication: MANTLE CELL LYMPHOMA
     Dosage: 25 MG DAYS 1, 8, 15, 22
     Route: 042
     Dates: start: 20080912, end: 20090818
  2. LASIX [Concomitant]
  3. POTASSIUM CHLORIDE [Concomitant]
  4. AMBIEN [Concomitant]
  5. VITAMIN B COMPLEX TAB [Concomitant]
  6. FERROUS SULFATE TAB [Concomitant]
  7. FLOMAX [Concomitant]
  8. LEVOTHYROXINE SODIUM [Concomitant]
  9. MULTI-VITAMINS [Concomitant]
  10. RITUXIMAB [Concomitant]
     Indication: MANTLE CELL LYMPHOMA
     Dosage: 375 MG/M^2 DAYS 1,8, 15, 22 FOR CYCLE 1 AND ON DAY 1 OF CYCLES 3, 5, 7, 9, 11 ONLY
     Route: 042
     Dates: start: 20080912, end: 20090818
  11. ANDROGEL [Concomitant]

REACTIONS (4)
  - MUSCLE ATROPHY [None]
  - NAIL DISORDER [None]
  - OEDEMA PERIPHERAL [None]
  - TESTICULAR ATROPHY [None]
